FAERS Safety Report 9346977 (Version 1)
Quarter: 2013Q2

REPORT INFORMATION
  Report Type: Spontaneous
  Country: FR (occurrence: FR)
  Receive Date: 20130613
  Receipt Date: 20130613
  Transmission Date: 20140414
  Serious: Yes (Death, Life-Threatening, Hospitalization)
  Sender: FDA-Public Use
  Company Number: FR-ASTRAZENECA-2013SE42150

PATIENT
  Age: 30254 Day
  Sex: Male

DRUGS (24)
  1. BRILIQUE [Suspect]
     Indication: ACUTE CORONARY SYNDROME
     Route: 048
     Dates: start: 20130504, end: 20130523
  2. ASPEGIC [Suspect]
     Indication: ACUTE CORONARY SYNDROME
     Dosage: UNKNOWN DOSE ONCE SINGLE ADMINISTRION
  3. KARDEGIC [Suspect]
     Indication: ACUTE CORONARY SYNDROME
     Route: 048
     Dates: start: 20130504, end: 20130523
  4. LOVENOX [Suspect]
     Indication: ACUTE CORONARY SYNDROME
     Dosage: 60 MG/0.6 ML, 1 DOSAGE FORM DAILY
     Route: 058
     Dates: start: 20130504, end: 20130505
  5. LOVENOX [Suspect]
     Indication: ACUTE CORONARY SYNDROME
     Route: 058
     Dates: start: 20130508, end: 20130523
  6. HEPARINE CHOAY [Suspect]
     Indication: ACUTE CORONARY SYNDROME
     Dates: start: 20130504, end: 20130504
  7. ANGIOX [Suspect]
     Indication: ACUTE CORONARY SYNDROME
     Dosage: UNKNOWN DOSE ONCE SINGLE ADMINISTRION
     Route: 042
     Dates: start: 20130504, end: 20130504
  8. RISORDAN [Concomitant]
     Indication: ACUTE CORONARY SYNDROME
     Dates: start: 20130504
  9. ADRENALINE [Concomitant]
  10. CORDARONE [Concomitant]
  11. DOBUTAMINE [Concomitant]
     Dates: start: 20130507, end: 20130509
  12. NORADRENALINE [Concomitant]
     Dates: start: 20130507, end: 20130523
  13. TAHOR [Concomitant]
     Route: 048
     Dates: start: 20130507, end: 20130523
  14. MIDAZOLAM [Concomitant]
     Route: 048
     Dates: start: 20130507, end: 20130523
  15. LEXOMIL [Concomitant]
     Route: 048
     Dates: start: 20130504, end: 20130506
  16. AUGMENTIN [Concomitant]
     Indication: CITROBACTER INFECTION
     Dates: start: 20130509, end: 20130514
  17. AUGMENTIN [Concomitant]
     Indication: CITROBACTER INFECTION
     Dates: start: 20130521, end: 20130523
  18. TAZOCILLINE [Concomitant]
     Indication: CITROBACTER INFECTION
     Dates: start: 20130518, end: 20130521
  19. KREDEX [Concomitant]
     Route: 048
     Dates: start: 20130504, end: 20130507
  20. COVERSYL [Concomitant]
  21. XATRAL [Concomitant]
  22. LASILIX [Concomitant]
  23. FORLAX [Concomitant]
  24. PERFALGAN [Concomitant]
     Indication: ACUTE CORONARY SYNDROME
     Dates: start: 20130504

REACTIONS (11)
  - Pulmonary alveolar haemorrhage [Fatal]
  - Dysuria [Unknown]
  - Cardiac failure congestive [Unknown]
  - Atrial fibrillation [Unknown]
  - Ventricular tachycardia [Unknown]
  - Pneumonia [Unknown]
  - Septic shock [Unknown]
  - Haemoglobin decreased [Not Recovered/Not Resolved]
  - Haematuria [Recovered/Resolved]
  - Puncture site haemorrhage [Not Recovered/Not Resolved]
  - Blood creatinine increased [Unknown]
